FAERS Safety Report 9067341 (Version 3)
Quarter: 2013Q2

REPORT INFORMATION
  Report Type: Spontaneous
  Country: DE (occurrence: DE)
  Receive Date: 20130214
  Receipt Date: 20130617
  Transmission Date: 20140414
  Serious: Yes (Other)
  Sender: FDA-Public Use
  Company Number: DE-BAYER-2013-009209

PATIENT
  Age: 43 Year
  Sex: Female
  Weight: 77 kg

DRUGS (3)
  1. AVALOX [Suspect]
     Indication: BRONCHITIS
     Dosage: 400 MG, QD
     Dates: start: 20130102, end: 20130106
  2. NOVOPULMON [Concomitant]
     Indication: BRONCHITIS
     Dosage: 800 MG, BID
     Dates: start: 20130111
  3. DECORTIN [Concomitant]
     Dosage: 20 MG, UNK
     Dates: start: 20130211

REACTIONS (2)
  - Ageusia [Recovering/Resolving]
  - Hyposmia [Recovering/Resolving]
